FAERS Safety Report 7703564-5 (Version None)
Quarter: 2011Q3

REPORT INFORMATION
  Report Type: 
  Country: None (occurrence: None)
  Receive Date: 20110823
  Receipt Date: 20110812
  Transmission Date: 20111222
  Serious: Yes (Hospitalization, Other)
  Sender: FDA-Public Use
  Company Number: PHFR2011GB04475

PATIENT
  Sex: Male

DRUGS (2)
  1. CLOZAPINE [Suspect]
     Indication: SCHIZOPHRENIA
     Dosage: 12.5/50 MG
     Route: 048
     Dates: start: 20070706, end: 20110723
  2. SINEMET [Suspect]

REACTIONS (3)
  - PSYCHOTIC DISORDER [None]
  - FALL [None]
  - PARKINSON'S DISEASE [None]
